FAERS Safety Report 18541462 (Version 1)
Quarter: 2020Q4

REPORT INFORMATION
  Report Type: Report from Study
  Country: US (occurrence: US)
  Receive Date: 20201124
  Receipt Date: 20201124
  Transmission Date: 20210114
  Serious: Yes (Other)
  Sender: FDA-Public Use
  Company Number: US-BAUSCH-BL-2020-034240

PATIENT
  Age: 75 Year
  Sex: Female

DRUGS (3)
  1. TARGRETIN [Suspect]
     Active Substance: BEXAROTENE
     Indication: T-CELL LYMPHOMA
     Dosage: ABOUT TWO YEARS AGO, 6 CAPSULES DAILY FOR 1 WEEK
     Route: 048
     Dates: start: 2018
  2. TARGRETIN [Suspect]
     Active Substance: BEXAROTENE
     Dosage: 4 CAPSULES DAILY, STOP DATE: AT THE END OF 2019 OR BEGINNING OF 2020
     Route: 048
  3. ASPIRIN. [Concomitant]
     Active Substance: ASPIRIN
     Indication: PRODUCT USED FOR UNKNOWN INDICATION
     Route: 048

REACTIONS (3)
  - Therapy cessation [Unknown]
  - Breast cancer [Unknown]
  - Drug ineffective [Unknown]

NARRATIVE: CASE EVENT DATE: 2018
